FAERS Safety Report 10761768 (Version 1)
Quarter: 2015Q1

REPORT INFORMATION
  Report Type: Spontaneous
  Country: US (occurrence: None)
  Receive Date: 20150203
  Receipt Date: 20150203
  Transmission Date: 20150721
  Serious: Yes (Other)
  Sender: FDA-Public Use
  Company Number: None

PATIENT
  Age: 77 Year
  Sex: Female
  Weight: 88 kg

DRUGS (1)
  1. ATORVASTATIN [Suspect]
     Active Substance: ATORVASTATIN
     Indication: BLOOD CHOLESTEROL INCREASED
     Dosage: 1/2 PILL PER DAY
     Route: 048
     Dates: start: 20150111, end: 20150117

REACTIONS (3)
  - Musculoskeletal disorder [None]
  - Pain in extremity [None]
  - Product substitution issue [None]

NARRATIVE: CASE EVENT DATE: 20150113
